FAERS Safety Report 13023047 (Version 1)
Quarter: 2016Q4

REPORT INFORMATION
  Report Type: Spontaneous
  Country: US (occurrence: US)
  Receive Date: 20161213
  Receipt Date: 20161213
  Transmission Date: 20170207
  Serious: No
  Sender: FDA-Public Use
  Company Number: US-TEVA-639215USA

PATIENT
  Age: 8 Year
  Sex: Female

DRUGS (1)
  1. AZITHROMYCIN ANHYDROUS. [Suspect]
     Active Substance: AZITHROMYCIN ANHYDROUS
     Dosage: 200MG/5ML
     Route: 048
     Dates: start: 20160220, end: 20160224

REACTIONS (2)
  - Pain in extremity [Recovered/Resolved]
  - Serum sickness [Recovered/Resolved]

NARRATIVE: CASE EVENT DATE: 201602
